FAERS Safety Report 8840881 (Version 3)
Quarter: 2012Q4

REPORT INFORMATION
  Report Type: 
  Country: US (occurrence: US)
  Receive Date: 20121015
  Receipt Date: 20121231
  Transmission Date: 20130627
  Serious: Yes (Hospitalization, Disabling)
  Sender: FDA-Public Use
  Company Number: PHEH2009US12484

PATIENT
  Age: 66 Year
  Sex: Female
  Weight: 83.46 kg

DRUGS (13)
  1. EXJADE [Suspect]
     Indication: IRON OVERLOAD
     Dosage: 500 mg, three times a day
     Route: 048
     Dates: start: 20060302, end: 20090720
  2. EXJADE [Suspect]
     Dosage: 250 mg, daily
     Route: 048
     Dates: start: 20061114, end: 20090720
  3. EXJADE [Suspect]
     Dosage: 1750 mg, QD
     Route: 048
     Dates: end: 201209
  4. WARFARIN [Concomitant]
     Indication: VENOUS THROMBOSIS
     Dosage: UNK UKN, UNK
     Route: 048
     Dates: start: 200707
  5. COZAAR [Concomitant]
     Indication: HYPERTENSION
     Dosage: 50 mg, daily
     Route: 048
  6. ASA [Concomitant]
     Dosage: 81 mg, daily
     Route: 048
  7. SIMVASTATIN [Concomitant]
     Indication: HYPERLIPIDAEMIA
     Dosage: 10 mg, daily
     Route: 048
  8. CRESTOR [Concomitant]
     Dosage: 5 mg, QD
     Route: 048
     Dates: start: 20110901
  9. LOSARTAN [Concomitant]
     Dosage: 1 g, UNK
     Route: 048
  10. LASIX [Concomitant]
     Dosage: 20 mg, QD
     Route: 048
  11. KCL [Concomitant]
     Dosage: 10 mg, UNK
     Route: 048
  12. INSULIN [Concomitant]
     Dosage: 22 UKN, UNK
  13. TOPROL XL [Concomitant]
     Dosage: 25 mg, UNK
     Route: 048

REACTIONS (3)
  - Tinnitus [Not Recovered/Not Resolved]
  - Deafness [Not Recovered/Not Resolved]
  - Hypoacusis [Not Recovered/Not Resolved]
